FAERS Safety Report 7345977-X (Version None)
Quarter: 2011Q1

REPORT INFORMATION
  Report Type: 
  Country: None (occurrence: None)
  Receive Date: 20110311
  Receipt Date: 20110304
  Transmission Date: 20110831
  Serious: No
  Sender: FDA-Public Use
  Company Number: US-BIOGENIDEC-2011BI008695

PATIENT
  Age: 66 Year
  Sex: Female

DRUGS (3)
  1. TYSABRI [Suspect]
     Indication: MULTIPLE SCLEROSIS
     Route: 042
     Dates: start: 20090507
  2. TYSABRI [Suspect]
     Route: 042
     Dates: start: 20081024, end: 20081231
  3. TYSABRI [Suspect]
     Route: 042
     Dates: start: 20070316, end: 20080417

REACTIONS (1)
  - MEMORY IMPAIRMENT [None]
